FAERS Safety Report 9651421 (Version 7)
Quarter: 2016Q1

REPORT INFORMATION
  Report Type: Report from Study
  Country: US (occurrence: US)
  Receive Date: 20131029
  Receipt Date: 20160108
  Transmission Date: 20160526
  Serious: Yes (Hospitalization)
  Sender: FDA-Public Use
  Company Number: US-SA-2013SA109270

PATIENT
  Age: 49 Year
  Sex: Female

DRUGS (1)
  1. AUBAGIO [Suspect]
     Active Substance: TERIFLUNOMIDE
     Indication: MULTIPLE SCLEROSIS
     Dosage: DOSE: 7 AND 14MG
     Route: 048
     Dates: start: 20131005, end: 20140502

REACTIONS (4)
  - Pyrexia [Unknown]
  - Sluggishness [Unknown]
  - Hypotension [Unknown]
  - Alopecia [Unknown]

NARRATIVE: CASE EVENT DATE: 201310
